FAERS Safety Report 4544483-5 (Version None)
Quarter: 2004Q4

REPORT INFORMATION
  Report Type: 
  Country: None (occurrence: None)
  Receive Date: 20041230
  Receipt Date: 20041217
  Transmission Date: 20050328
  Serious: Yes (Hospitalization)
  Sender: FDA-Public Use
  Company Number: DSA_60462_2004

PATIENT
  Age: 84 Year
  Sex: Male

DRUGS (2)
  1. MYSOLINE [Suspect]
     Dosage: 400 MG TID PO
     Route: 048
     Dates: end: 20041210
  2. MYSOLINE [Suspect]
     Dosage: 50 MG TID PO
     Route: 048

REACTIONS (3)
  - HAEMATOCRIT DECREASED [None]
  - MEDICATION ERROR [None]
  - PNEUMONIA [None]
